FAERS Safety Report 12663509 (Version 1)
Quarter: 2016Q3

REPORT INFORMATION
  Report Type: Spontaneous
  Country: US (occurrence: US)
  Receive Date: 20160818
  Receipt Date: 20160818
  Transmission Date: 20161109
  Serious: No
  Sender: FDA-Public Use
  Company Number: US-BAYER-2016-153798

PATIENT
  Age: 85 Year
  Sex: Female
  Weight: 117.91 kg

DRUGS (4)
  1. MIRALAX [Suspect]
     Active Substance: POLYETHYLENE GLYCOL 3350
     Indication: CONSTIPATION
     Dosage: 1 DF, QD
     Route: 048
     Dates: start: 20160801
  2. LEVOTHYROXINE. [Concomitant]
     Active Substance: LEVOTHYROXINE
  3. METFORMIN [Concomitant]
     Active Substance: METFORMIN HYDROCHLORIDE
  4. ATORVASTATIN [Concomitant]
     Active Substance: ATORVASTATIN

REACTIONS (9)
  - Abdominal discomfort [None]
  - Abdominal discomfort [None]
  - Abdominal discomfort [None]
  - Flatulence [None]
  - Flatulence [None]
  - Flatulence [None]
  - Abdominal discomfort [None]
  - Flatulence [None]
  - Product use issue [None]

NARRATIVE: CASE EVENT DATE: 20160801
